FAERS Safety Report 5752974-4 (Version None)
Quarter: 2008Q2

REPORT INFORMATION
  Report Type: 
  Country: None (occurrence: None)
  Receive Date: 20080529
  Receipt Date: 20080521
  Transmission Date: 20081010
  Serious: Yes (Hospitalization, Disabling, Other)
  Sender: FDA-Public Use
  Company Number: US-MERCK-0705USA02864

PATIENT
  Age: 37 Year
  Sex: Female
  Weight: 73 kg

DRUGS (11)
  1. FOSAMAX [Suspect]
     Indication: JAW FRACTURE
     Route: 048
     Dates: start: 20001017, end: 20020101
  2. FOSAMAX [Suspect]
     Route: 048
     Dates: start: 20020501
  3. FOSAMAX [Suspect]
     Route: 048
     Dates: start: 20001001
  4. FOSAMAX [Suspect]
     Indication: BONE DISORDER
     Route: 048
     Dates: start: 20001017, end: 20020101
  5. FOSAMAX [Suspect]
     Route: 048
     Dates: start: 20020501
  6. FOSAMAX [Suspect]
     Route: 048
     Dates: start: 20001001
  7. LASIX [Concomitant]
     Route: 065
  8. OXYCONTIN [Concomitant]
     Route: 065
  9. [THERAPY UNSPECIFIED] [Concomitant]
     Route: 065
  10. ELAVIL [Concomitant]
     Route: 048
  11. LIDOCAINE [Concomitant]
     Route: 065

REACTIONS (25)
  - ANXIETY [None]
  - BALANCE DISORDER [None]
  - COLITIS [None]
  - CONCUSSION [None]
  - DEPRESSION [None]
  - FLUID RETENTION [None]
  - IMPAIRED HEALING [None]
  - IMPRISONMENT [None]
  - INAPPROPRIATE SCHEDULE OF DRUG ADMINISTRATION [None]
  - INFECTION [None]
  - INFLAMMATORY BOWEL DISEASE [None]
  - MUSCULOSKELETAL STIFFNESS [None]
  - NEOPLASM MALIGNANT [None]
  - OSTEOMYELITIS [None]
  - OSTEONECROSIS [None]
  - PAIN IN JAW [None]
  - PHYSICAL ABUSE [None]
  - RESORPTION BONE INCREASED [None]
  - RETINAL DETACHMENT [None]
  - ROAD TRAFFIC ACCIDENT [None]
  - SNAKE BITE [None]
  - TOOTH LOSS [None]
  - TRISMUS [None]
  - WEIGHT INCREASED [None]
  - WOUND [None]
